FAERS Safety Report 23791173 (Version 3)
Quarter: 2024Q3

REPORT INFORMATION
  Report Type: Report from Study
  Country: BE (occurrence: BE)
  Receive Date: 20240428
  Receipt Date: 20240813
  Transmission Date: 20241017
  Serious: Yes (Death, Life-Threatening, Hospitalization, Other)
  Sender: JOHNSON AND JOHNSON
  Company Number: BE-JNJFOC-20240473592

PATIENT
  Age: 81 Year
  Sex: Female

DRUGS (1)
  1. SPRAVATO [Suspect]
     Active Substance: ESKETAMINE
     Indication: Depression

REACTIONS (2)
  - Neoplasm malignant [Fatal]
  - Post procedural complication [Unknown]

NARRATIVE: CASE EVENT DATE: 20240322
